FAERS Safety Report 21939673 (Version 1)
Quarter: 2023Q1

REPORT INFORMATION
  Report Type: Report from Study
  Country: US (occurrence: US)
  Receive Date: 20230201
  Receipt Date: 20230201
  Transmission Date: 20230418
  Serious: No
  Sender: FDA-Public Use
  Company Number: US-EXELIXIS-CABO-22048829

PATIENT
  Age: 66 Year
  Sex: Male

DRUGS (1)
  1. CABOMETYX [Suspect]
     Active Substance: CABOZANTINIB S-MALATE
     Indication: Product used for unknown indication
     Dosage: 60 MG, QD
     Route: 048
     Dates: start: 202102

REACTIONS (9)
  - Skin disorder [Recovered/Resolved]
  - Blister [Unknown]
  - Flatulence [Unknown]
  - Stomatitis [Recovering/Resolving]
  - Diarrhoea [Unknown]
  - Fatigue [Recovering/Resolving]
  - Nausea [Unknown]
  - Decreased appetite [Unknown]
  - Dry skin [Recovering/Resolving]

NARRATIVE: CASE EVENT DATE: 20220131
